FAERS Safety Report 8050795 (Version 2)
Quarter: 2013Q1

REPORT INFORMATION
  Report Type: Spontaneous
  Country: AU (occurrence: AU)
  Receive Date: 20110725
  Receipt Date: 20130328
  Transmission Date: 20140127
  Serious: Yes (Other)
  Sender: FDA-Public Use
  Company Number: AU-JNJFOC-20110706108

PATIENT
  Age: 56 None
  Sex: Male
  Weight: 75 kg

DRUGS (2)
  1. REMICADE [Suspect]
     Indication: RHEUMATOID ARTHRITIS
     Dosage: HAS BEEN ON REMICADE FOR 3 YEARS
     Route: 042
     Dates: start: 20070625, end: 20121102
  2. METHOTREXATE [Concomitant]
     Indication: RHEUMATOID ARTHRITIS
     Route: 065
     Dates: start: 20050801, end: 20120702

REACTIONS (3)
  - Chronic lymphocytic leukaemia [Recovered/Resolved]
  - Mycosis fungoides [Unknown]
  - Hodgkin^s disease [Recovered/Resolved]
